FAERS Safety Report 24232064 (Version 1)
Quarter: 2024Q3

REPORT INFORMATION
  Report Type: Other
  Country: CN (occurrence: CN)
  Receive Date: 20240821
  Receipt Date: 20240821
  Transmission Date: 20241016
  Serious: Yes (Life-Threatening, Hospitalization)
  Sender: Chongqing Ryan Pharmaceutical
  Company Number: CN-Chongqing Ryan Pharmaceutical Co., Ltd.-2160658

PATIENT
  Age: 82 Year
  Sex: Female

DRUGS (2)
  1. QUETIAPINE [Suspect]
     Active Substance: QUETIAPINE
  2. FAMOTIDINE [Suspect]
     Active Substance: FAMOTIDINE

REACTIONS (1)
  - Stevens-Johnson syndrome [Not Recovered/Not Resolved]
